FAERS Safety Report 15884359 (Version 2)
Quarter: 2019Q3

REPORT INFORMATION
  Report Type: Spontaneous
  Country: US (occurrence: US)
  Receive Date: 20190129
  Receipt Date: 20190726
  Transmission Date: 20191004
  Serious: No
  Sender: FDA-Public Use
  Company Number: US-PFIZER INC-2019033884

PATIENT
  Age: 25 Year
  Sex: Female

DRUGS (2)
  1. ENBREL [Concomitant]
     Active Substance: ETANERCEPT
     Indication: BEHCET^S SYNDROME
     Dosage: 50 MG, QWK
     Route: 065
     Dates: start: 201804
  2. DEPO-PROVERA [Suspect]
     Active Substance: MEDROXYPROGESTERONE ACETATE
     Dosage: FOR ABOUT FIVE YEARS
     Route: 065
     Dates: end: 201807

REACTIONS (3)
  - Blood pressure increased [Recovered/Resolved]
  - Migraine [Recovering/Resolving]
  - Bone density decreased [Unknown]

NARRATIVE: CASE EVENT DATE: 2018
